FAERS Safety Report 8585369-9 (Version None)
Quarter: 2012Q3

REPORT INFORMATION
  Report Type: 
  Country: None (occurrence: None)
  Receive Date: 20120810
  Receipt Date: 20120802
  Transmission Date: 20120928
  Serious: Yes (Hospitalization)
  Sender: FDA-Public Use
  Company Number: US-ASTELLAS-2012US006030

PATIENT
  Age: 55 Year
  Sex: Female
  Weight: 108 kg

DRUGS (4)
  1. ERLOTINIB HYDROCHLORIDE [Suspect]
     Indication: NON-SMALL CELL LUNG CANCER
     Dosage: 150 MG, UID/QD
     Route: 048
     Dates: start: 20111031, end: 20120705
  2. AMLODIPINE [Concomitant]
     Indication: HYPERTENSION
     Dosage: UNK
     Route: 065
  3. RO4929097 [Suspect]
     Indication: NON-SMALL CELL LUNG CANCER
     Dosage: 45 MG, UID/QD ON DAYS 1-3, 8-10 AND 15-17
     Route: 048
     Dates: start: 20111031, end: 20120701
  4. LOSARTAN POTASSIUM [Concomitant]
     Indication: HYPERTENSION
     Dosage: UNK
     Route: 065

REACTIONS (4)
  - ANAEMIA [None]
  - METASTASES TO CENTRAL NERVOUS SYSTEM [None]
  - HYPOMAGNESAEMIA [None]
  - BACK PAIN [None]
